FAERS Safety Report 9235445 (Version 1)
Quarter: 2013Q2

REPORT INFORMATION
  Report Type: Spontaneous
  Country: US (occurrence: None)
  Receive Date: 20130416
  Receipt Date: 20130416
  Transmission Date: 20140414
  Serious: Yes (Death)
  Sender: FDA-Public Use
  Company Number: None

PATIENT
  Age: 57 Year
  Sex: Male

DRUGS (9)
  1. NEXAVAR 200 MG TABLET [Suspect]
     Route: 048
  2. FENTANYL [Concomitant]
  3. SPIRONOLACTONE [Concomitant]
  4. PROPRANOLOL [Concomitant]
  5. VIT B6 [Concomitant]
  6. BENCAR [Concomitant]
  7. FUROSEMIDE [Concomitant]
  8. NEXIUM [Concomitant]
  9. NORCO [Concomitant]

REACTIONS (1)
  - Cardio-respiratory arrest [None]
